FAERS Safety Report 8268656 (Version 5)
Quarter: 2012Q4

REPORT INFORMATION
  Report Type: 
  Country: ES (occurrence: ES)
  Receive Date: 20111130
  Receipt Date: 20121203
  Transmission Date: 20130627
  Serious: Yes (Other)
  Sender: FDA-Public Use
  Company Number: ES-JNJFOC-20111110732

PATIENT
  Age: 28 Year
  Sex: Female

DRUGS (5)
  1. USTEKINUMAB [Suspect]
     Indication: PSORIASIS
     Route: 058
  2. USTEKINUMAB [Suspect]
     Indication: PSORIASIS
     Route: 058
  3. ETHAMBUTOL [Concomitant]
     Indication: LYMPH NODE TUBERCULOSIS
  4. ISONIAZID [Concomitant]
     Indication: LYMPH NODE TUBERCULOSIS
  5. PYRAZINAMIDE [Concomitant]
     Indication: LYMPH NODE TUBERCULOSIS

REACTIONS (2)
  - Lymph node tuberculosis [Recovered/Resolved]
  - Transaminases increased [Unknown]
